FAERS Safety Report 18340444 (Version 3)
Quarter: 2021Q4

REPORT INFORMATION
  Report Type: Report from Study
  Country: CH (occurrence: CH)
  Receive Date: 20201002
  Receipt Date: 20211228
  Transmission Date: 20220303
  Serious: Yes (Death)
  Sender: FDA-Public Use
  Company Number: CH-PFIZER INC-2020380402

PATIENT

DRUGS (3)
  1. DOCETAXEL [Suspect]
     Active Substance: DOCETAXEL
     Indication: Non-small cell lung cancer stage IIIA
     Dosage: 85 MG/M2, EVERY 3 WEEKS (3 CYCLES)
  2. CISPLATIN [Suspect]
     Active Substance: CISPLATIN
     Indication: Non-small cell lung cancer stage IIIA
     Dosage: 100 MG/M2, EVERY 3 WEEKS (3 CYCLES)
  3. DURVALUMAB [Suspect]
     Active Substance: DURVALUMAB
     Indication: Non-small cell lung cancer stage IIIA
     Dosage: 750 MG, EVERY 2 WEEKS, (2 CYCLES)

REACTIONS (1)
  - Post procedural haemorrhage [Fatal]
